FAERS Safety Report 5760287-X (Version None)
Quarter: 2008Q2

REPORT INFORMATION
  Report Type: 
  Country: None (occurrence: None)
  Receive Date: 20080602
  Receipt Date: 20071203
  Transmission Date: 20081010
  Serious: Yes (Disabling, Other)
  Sender: FDA-Public Use
  Company Number: 601#2#2007-00001

PATIENT
  Sex: Male

DRUGS (1)
  1. VASOPROSTAN [Suspect]
     Route: 041

REACTIONS (7)
  - FEELING HOT [None]
  - LEG AMPUTATION [None]
  - LOCALISED INFECTION [None]
  - OEDEMA [None]
  - POLYNEUROPATHY [None]
  - SKIN ULCER [None]
  - WOUND SECRETION [None]
